FAERS Safety Report 16814721 (Version 1)
Quarter: 2019Q3

REPORT INFORMATION
  Report Type: Spontaneous
  Country: ES (occurrence: ES)
  Receive Date: 20190917
  Receipt Date: 20190917
  Transmission Date: 20191005
  Serious: Yes (Other)
  Sender: FDA-Public Use
  Company Number: ES-TEVA-2019-ES-1107466

PATIENT
  Age: 11 Month
  Sex: Female
  Weight: 7.5 kg

DRUGS (1)
  1. OP2455 - OMEPRAZOL F?RMULA MAGISTRAL [Suspect]
     Active Substance: OMEPRAZOLE
     Indication: GASTROOESOPHAGEAL REFLUX DISEASE
     Dosage: 1 ML/ 24H
     Route: 048
     Dates: start: 201811

REACTIONS (1)
  - Hypertrichosis [Recovered/Resolved]

NARRATIVE: CASE EVENT DATE: 201901
